FAERS Safety Report 5149455-8 (Version None)
Quarter: 2006Q4

REPORT INFORMATION
  Report Type: 
  Country: None (occurrence: None)
  Receive Date: 20061113
  Receipt Date: 20060119
  Transmission Date: 20070319
  Serious: Yes (Life-Threatening, Disabling, Other)
  Sender: FDA-Public Use
  Company Number: 433751

PATIENT
  Age: 59 Year
  Sex: Male

DRUGS (2)
  1. COREG [Suspect]
     Route: 048
     Dates: start: 20030101, end: 20040101
  2. METOPROLOL TARTRATE [Suspect]
     Dates: start: 20040101

REACTIONS (2)
  - ATRIOVENTRICULAR BLOCK [None]
  - DRUG INEFFECTIVE [None]
